FAERS Safety Report 9885421 (Version 1)
Quarter: 2014Q1

REPORT INFORMATION
  Report Type: Spontaneous
  Country: NL (occurrence: NL)
  Receive Date: 20140210
  Receipt Date: 20140210
  Transmission Date: 20141002
  Serious: Yes (Other)
  Sender: FDA-Public Use
  Company Number: NL-UCBSA-111400

PATIENT
  Age: 46 Year
  Sex: Male

DRUGS (5)
  1. CIMZIA [Suspect]
     Indication: RHEUMATOID ARTHRITIS
     Dosage: DOSE: 200 MG, FREQUENCY: Q2, NUMBER OF DOSES RECEIVED: 4
     Route: 058
     Dates: start: 201307, end: 20131220
  2. OMEPRAZOL [Concomitant]
  3. PREDNISONE [Concomitant]
  4. TRAMADOL [Concomitant]
  5. PREGABALIN [Concomitant]

REACTIONS (13)
  - Weight decreased [Not Recovered/Not Resolved]
  - Dyspnoea [Recovered/Resolved with Sequelae]
  - Dysphagia [Recovered/Resolved with Sequelae]
  - Pyrexia [Recovered/Resolved with Sequelae]
  - Nausea [Recovered/Resolved with Sequelae]
  - Fatigue [Recovered/Resolved with Sequelae]
  - Anxiety [Recovered/Resolved with Sequelae]
  - Viral infection [Unknown]
  - Fungal infection [Unknown]
  - Gastrointestinal disorder [Recovered/Resolved with Sequelae]
  - Hyperhidrosis [Recovered/Resolved with Sequelae]
  - Pruritus [Unknown]
  - Injection site reaction [Unknown]
